FAERS Safety Report 8743920 (Version 3)
Quarter: 2012Q4

REPORT INFORMATION
  Report Type: 
  Country: US (occurrence: US)
  Receive Date: 20120824
  Receipt Date: 20120928
  Transmission Date: 20130627
  Serious: Yes (Death, Hospitalization, Other)
  Sender: FDA-Public Use
  Company Number: US-BAXTER-2012BAX015081

PATIENT
  Sex: Female

DRUGS (1)
  1. DIANEAL LOW CALCIUM [Suspect]
     Indication: PERITONEAL DIALYSIS
     Route: 033
     Dates: end: 20120831

REACTIONS (7)
  - Hepatic failure [Fatal]
  - Delusion [Unknown]
  - Amnesia [Unknown]
  - Renal failure [Unknown]
  - Bacteraemia [Unknown]
  - Blood glucose decreased [Unknown]
  - Malaise [Unknown]
